FAERS Safety Report 25439773 (Version 1)
Quarter: 2025Q2

REPORT INFORMATION
  Report Type: Other
  Country: US (occurrence: US)
  Receive Date: 20250616
  Receipt Date: 20250616
  Transmission Date: 20250716
  Serious: Yes (Hospitalization)
  Sender: SPECTRA MEDICAL DEVICES, LLC
  Company Number: US-Spectra Medical Devices, LLC-2178763

PATIENT
  Age: 37 Year
  Sex: Female

DRUGS (8)
  1. LIDOCAINE HYDROCHLORIDE [Suspect]
     Active Substance: LIDOCAINE HYDROCHLORIDE
     Indication: Dental local anaesthesia
  2. SULFAMETHOXAZOLE AND TRIMETHOPRIM [Suspect]
     Active Substance: SULFAMETHOXAZOLE\TRIMETHOPRIM
  3. CEFTRIAXONE [Concomitant]
     Active Substance: CEFTRIAXONE
  4. HYDROCORTISONE ACETATE [Concomitant]
     Active Substance: HYDROCORTISONE ACETATE
  5. OSILODROSTAT [Concomitant]
     Active Substance: OSILODROSTAT
  6. FLUOXETINE [Concomitant]
     Active Substance: FLUOXETINE HYDROCHLORIDE
  7. APIXABAN [Concomitant]
     Active Substance: APIXABAN
  8. PHENAZOPYRIDINE [Suspect]
     Active Substance: PHENAZOPYRIDINE

REACTIONS (1)
  - Sulphaemoglobinaemia [Recovered/Resolved]
